FAERS Safety Report 20393933 (Version 2)
Quarter: 2022Q4

REPORT INFORMATION
  Report Type: Spontaneous
  Country: US (occurrence: US)
  Receive Date: 20220129
  Receipt Date: 20221014
  Transmission Date: 20230112
  Serious: Yes (Other)
  Sender: FDA-Public Use
  Company Number: US-ABBVIE-22K-163-4248630-00

PATIENT
  Age: 20 Year
  Sex: Male
  Weight: 187 kg

DRUGS (1)
  1. HUMIRA [Suspect]
     Active Substance: ADALIMUMAB
     Indication: Colitis ulcerative
     Dosage: CITRATE FREE ?40MG/0.4ML
     Route: 058
     Dates: start: 20210423, end: 20220701

REACTIONS (2)
  - Electrocution [Unknown]
  - Apparent death [Unknown]

NARRATIVE: CASE EVENT DATE: 20220115
